FAERS Safety Report 10248867 (Version 4)
Quarter: 2014Q3

REPORT INFORMATION
  Report Type: Report from Study
  Country: US (occurrence: US)
  Receive Date: 20140620
  Receipt Date: 20140801
  Transmission Date: 20150326
  Serious: Yes (Hospitalization)
  Sender: FDA-Public Use
  Company Number: US-SA-2014SA076157

PATIENT
  Age: 70 Year
  Sex: Female

DRUGS (1)
  1. LANTUS [Suspect]
     Active Substance: INSULIN GLARGINE
     Indication: TYPE 2 DIABETES MELLITUS
     Dosage: DOSE: 90 UNITS QAM AND 70 UNITS QPM
     Route: 065

REACTIONS (4)
  - Hysterectomy [Unknown]
  - Cough [Recovering/Resolving]
  - Amnesia [Unknown]
  - Drug administration error [Unknown]

NARRATIVE: CASE EVENT DATE: 20140529
